FAERS Safety Report 25106779 (Version 1)
Quarter: 2025Q1

REPORT INFORMATION
  Report Type: Spontaneous
  Country: FR (occurrence: FR)
  Receive Date: 20250321
  Receipt Date: 20250321
  Transmission Date: 20250409
  Serious: Yes (Hospitalization)
  Sender: TEVA
  Company Number: None

PATIENT
  Age: 25 Year
  Sex: Male
  Weight: 155 kg

DRUGS (5)
  1. DIAZEPAM [Suspect]
     Active Substance: DIAZEPAM
     Indication: Back pain
     Route: 048
     Dates: start: 20250129, end: 20250206
  2. CARBOCYSTEINE [Suspect]
     Active Substance: CARBOCYSTEINE
     Indication: Influenza
     Route: 048
     Dates: start: 20250129, end: 20250206
  3. AUGMENTIN [Suspect]
     Active Substance: AMOXICILLIN\CLAVULANATE POTASSIUM
     Indication: Influenza
     Route: 048
     Dates: start: 20250129, end: 20250205
  4. ASPIRIN [Suspect]
     Active Substance: ASPIRIN
     Indication: Influenza
     Route: 048
     Dates: start: 20250129, end: 20250206
  5. DAFALGAN CODEINE [Suspect]
     Active Substance: ACETAMINOPHEN\CODEINE PHOSPHATE
     Indication: Influenza
     Route: 048
     Dates: start: 20250129, end: 20250206

REACTIONS (1)
  - Hepatitis [Recovering/Resolving]

NARRATIVE: CASE EVENT DATE: 20250209
